FAERS Safety Report 4654856-8 (Version None)
Quarter: 2005Q2

REPORT INFORMATION
  Report Type: 
  Country: None (occurrence: None)
  Receive Date: 20050505
  Receipt Date: 20050422
  Transmission Date: 20051028
  Serious: Yes (Life-Threatening, Hospitalization, Other)
  Sender: FDA-Public Use
  Company Number: 2005S1002702

PATIENT
  Age: 35 Year
  Sex: Female
  Weight: 68.0396 kg

DRUGS (1)
  1. FENTANYL [Suspect]
     Indication: JOINT DISLOCATION
     Dosage: 50 MCG/HR;Q3D;TDER
     Route: 062
     Dates: start: 20050419, end: 20050401

REACTIONS (7)
  - ASPIRATION [None]
  - BRAIN OEDEMA [None]
  - COMA [None]
  - DEPRESSED LEVEL OF CONSCIOUSNESS [None]
  - DYSPNOEA [None]
  - MYOCARDIAL INFARCTION [None]
  - VOMITING [None]
